FAERS Safety Report 19488366 (Version 1)
Quarter: 2021Q3

REPORT INFORMATION
  Report Type: Spontaneous
  Country: US (occurrence: US)
  Receive Date: 20210703
  Receipt Date: 20210703
  Transmission Date: 20211014
  Serious: No
  Sender: FDA-Public Use
  Company Number: US-TEVA-2021-US-1926352

PATIENT
  Age: 16 Year
  Sex: Male

DRUGS (1)
  1. CLARAVIS [Suspect]
     Active Substance: ISOTRETINOIN
     Dosage: TO TAKE TWICE A DAY
     Route: 065

REACTIONS (2)
  - Product availability issue [Unknown]
  - White blood cell count decreased [Unknown]

NARRATIVE: CASE EVENT DATE: 20210620
